FAERS Safety Report 13582406 (Version 1)
Quarter: 2017Q2

REPORT INFORMATION
  Report Type: Spontaneous
  Country: US (occurrence: US)
  Receive Date: 20170525
  Receipt Date: 20170525
  Transmission Date: 20170830
  Serious: Yes (Other)
  Sender: FDA-Public Use
  Company Number: US-PURDUE PHARMA-GBR-2017-0045475

PATIENT
  Age: 98 Year
  Sex: Female
  Weight: 67 kg

DRUGS (9)
  1. BUPIVACAINE. [Concomitant]
     Active Substance: BUPIVACAINE
     Dosage: 10 ML, Q1H
  2. PROPOFOL. [Concomitant]
     Active Substance: PROPOFOL
     Indication: SEDATION
     Dosage: 20 MG, UNK
     Route: 042
  3. MEPIVACAINE [Concomitant]
     Active Substance: MEPIVACAINE\MEPIVACAINE HYDROCHLORIDE
     Dosage: 10 ML, UNK
  4. FENTANYL. [Concomitant]
     Active Substance: FENTANYL
     Indication: SEDATION
     Dosage: 50 MCG, UNK
     Route: 042
  5. ROPIVACAINE [Concomitant]
     Active Substance: ROPIVACAINE
     Dosage: 40 ML, UNK
  6. LIDOCAINE. [Concomitant]
     Active Substance: LIDOCAINE
     Indication: PAIN
  7. ACETAMINOPHEN. [Concomitant]
     Active Substance: ACETAMINOPHEN
     Dosage: 650 MG, UNK
     Route: 048
  8. NON-PMN MORPHINE SULFATE [Suspect]
     Active Substance: MORPHINE SULFATE
     Indication: PAIN
     Dosage: 8 MG, SEE TEXT
     Route: 042
  9. QUETIAPINE. [Suspect]
     Active Substance: QUETIAPINE
     Indication: PRODUCT USED FOR UNKNOWN INDICATION
     Route: 065

REACTIONS (1)
  - Delirium [Recovered/Resolved]
